FAERS Safety Report 22347068 (Version 6)
Quarter: 2025Q1

REPORT INFORMATION
  Report Type: Report from Study
  Country: US (occurrence: US)
  Receive Date: 20230520
  Receipt Date: 20250120
  Transmission Date: 20250409
  Serious: Yes (Hospitalization)
  Sender: NOVARTIS
  Company Number: US-002147023-NVSC2023US113378

PATIENT
  Age: 41 Year
  Sex: Female

DRUGS (1)
  1. KESIMPTA [Suspect]
     Active Substance: OFATUMUMAB
     Indication: Product used for unknown indication
     Dosage: UNK, QMO
     Route: 065
     Dates: start: 20230228

REACTIONS (7)
  - Diverticulitis [Unknown]
  - Post procedural complication [Unknown]
  - Pain [Unknown]
  - Dermatitis allergic [Unknown]
  - Paraesthesia [Unknown]
  - Pain in extremity [Unknown]
  - Mass [Unknown]

NARRATIVE: CASE EVENT DATE: 20230428
